FAERS Safety Report 16359279 (Version 2)
Quarter: 2019Q2

REPORT INFORMATION
  Report Type: Spontaneous
  Country: US (occurrence: US)
  Receive Date: 20190528
  Receipt Date: 20190528
  Transmission Date: 20190711
  Serious: Yes (Hospitalization)
  Sender: FDA-Public Use
  Company Number: US-SHIRE-US201916409

PATIENT
  Sex: Male

DRUGS (2)
  1. PENTASA [Suspect]
     Active Substance: MESALAMINE
     Indication: CROHN^S DISEASE
     Dosage: 6 GRAM
     Route: 065
     Dates: start: 1990, end: 201903
  2. PENTASA [Suspect]
     Active Substance: MESALAMINE
     Dosage: 2 GRAM
     Route: 065

REACTIONS (6)
  - Oedema [Recovering/Resolving]
  - Pruritus [Recovering/Resolving]
  - Influenza [Recovering/Resolving]
  - Cough [Recovering/Resolving]
  - Sensation of foreign body [Recovering/Resolving]
  - Diarrhoea [Not Recovered/Not Resolved]
